FAERS Safety Report 12356792 (Version 1)
Quarter: 2016Q2

REPORT INFORMATION
  Report Type: Spontaneous
  Country: US (occurrence: US)
  Receive Date: 20160511
  Receipt Date: 20160511
  Transmission Date: 20160815
  Serious: No
  Sender: FDA-Public Use
  Company Number: US-PFIZER INC-2016226412

PATIENT
  Age: 58 Year
  Sex: Female
  Weight: 43.9 kg

DRUGS (1)
  1. ADVIL [Suspect]
     Active Substance: IBUPROFEN
     Indication: TOOTHACHE
     Dosage: 200 MG CAPSULE ONCE A DAY
     Route: 048

REACTIONS (1)
  - Drug ineffective [Unknown]
